FAERS Safety Report 14310265 (Version 1)
Quarter: 2017Q4

REPORT INFORMATION
  Report Type: Spontaneous
  Country: US (occurrence: US)
  Receive Date: 20171220
  Receipt Date: 20171220
  Transmission Date: 20180321
  Serious: No
  Sender: FDA-Public Use
  Company Number: US-BAYER-2017-231736

PATIENT
  Age: 23 Year
  Sex: Female
  Weight: 52.9 kg

DRUGS (10)
  1. MIRENA [Suspect]
     Active Substance: LEVONORGESTREL
     Dosage: 20 MCG/24HR, CONT
     Route: 015
     Dates: start: 2012, end: 201710
  2. MIRENA [Suspect]
     Active Substance: LEVONORGESTREL
  3. SKYLA [Suspect]
     Active Substance: LEVONORGESTREL
     Indication: CONTRACEPTION
     Dosage: 14 MCG/24HR, CONT
     Route: 015
     Dates: start: 20171122, end: 20171122
  4. MISOPROSTOL. [Concomitant]
     Active Substance: MISOPROSTOL
     Dosage: UNK
     Dates: start: 20171127
  5. PLAN B [Concomitant]
     Active Substance: LEVONORGESTREL
     Indication: POST COITAL CONTRACEPTION
     Dosage: UNK
     Dates: start: 20171126
  6. CELEXA [Concomitant]
     Active Substance: CITALOPRAM HYDROBROMIDE
     Dosage: 1 DF, UNK
     Route: 048
  7. PRAZOSIN. [Concomitant]
     Active Substance: PRAZOSIN
     Dosage: 1 DF, QD AT BEDTIME
     Route: 048
  8. SKYLA [Suspect]
     Active Substance: LEVONORGESTREL
     Indication: CONTRACEPTION
     Dosage: 14 MCG/24HR, CONT
     Route: 015
     Dates: start: 20171128, end: 20171128
  9. CITALOPRAM HYDROBROMIDE. [Concomitant]
     Active Substance: CITALOPRAM HYDROBROMIDE
     Dosage: 1 DF, QD
     Route: 048
  10. LAMICTAL [Concomitant]
     Active Substance: LAMOTRIGINE
     Dosage: 2 DF, QD
     Route: 048

REACTIONS (10)
  - Device use issue [None]
  - Complication of device insertion [None]
  - Post procedural discomfort [None]
  - Fungal infection [None]
  - Complication of device insertion [None]
  - Device issue [None]
  - Device expulsion [None]
  - Device breakage [None]
  - Post procedural discomfort [None]
  - Procedural pain [None]

NARRATIVE: CASE EVENT DATE: 2017
